FAERS Safety Report 5006756-1 (Version None)
Quarter: 2006Q2

REPORT INFORMATION
  Report Type: 
  Country: None (occurrence: None)
  Receive Date: 20060516
  Receipt Date: 20060503
  Transmission Date: 20061013
  Serious: Yes (Hospitalization)
  Sender: FDA-Public Use
  Company Number: 2006060506

PATIENT
  Age: 58 Year
  Sex: Male
  Weight: 65 kg

DRUGS (2)
  1. VIBRAMYCIN [Suspect]
     Indication: WHIPPLE'S DISEASE
     Dosage: 200 MG (100 MG, 1 IN 1 D), ORAL
     Route: 048
     Dates: start: 20050803, end: 20060130
  2. HYDROXYCHLOROQUINE SULFATE [Suspect]
     Indication: WHIPPLE'S DISEASE
     Dosage: 600 MG ( 1 IN 1 D ), ORAL
     Route: 048
     Dates: start: 20050803, end: 20060130

REACTIONS (5)
  - AORTIC DISORDER [None]
  - HEADACHE [None]
  - INFLAMMATION [None]
  - PYREXIA [None]
  - SHOULDER PAIN [None]
